FAERS Safety Report 7937283-7 (Version None)
Quarter: 2011Q4

REPORT INFORMATION
  Report Type: 
  Country: None (occurrence: None)
  Receive Date: 20111123
  Receipt Date: 20111117
  Transmission Date: 20120403
  Serious: Yes (Hospitalization, Other)
  Sender: FDA-Public Use
  Company Number: DK-PFIZER INC-2011254675

PATIENT
  Age: 60 Year
  Sex: Female
  Weight: 40 kg

DRUGS (5)
  1. VARENICLINE TARTRATE [Suspect]
     Indication: SMOKING CESSATION THERAPY
     Dosage: UNK
     Dates: start: 20110601, end: 20110610
  2. ESCITALOPRAM [Concomitant]
     Dosage: UNK
  3. ZOLPIDEM TARTRATE [Concomitant]
     Dosage: UNK
  4. LEVOTHYROXINE SODIUM [Concomitant]
     Dosage: UNK
  5. APOZEPAM [Concomitant]
     Dosage: UNK

REACTIONS (9)
  - DIZZINESS [None]
  - FEAR OF DEATH [None]
  - PHARYNGEAL OEDEMA [None]
  - BRONCHITIS [None]
  - OEDEMA PERIPHERAL [None]
  - DYSKINESIA [None]
  - GINGIVAL DISORDER [None]
  - RASH GENERALISED [None]
  - ASTHMA [None]
